FAERS Safety Report 5752602-8 (Version None)
Quarter: 2008Q2

REPORT INFORMATION
  Report Type: 
  Country: None (occurrence: None)
  Receive Date: 20080527
  Receipt Date: 20080527
  Transmission Date: 20081010
  Serious: Yes (Hospitalization)
  Sender: FDA-Public Use
  Company Number: None

PATIENT
  Age: 77 Year
  Sex: Male

DRUGS (1)
  1. WARFARIN SODIUM [Suspect]
     Indication: CARDIAC VALVE DISEASE
     Dosage: 7.5 MG EVERY DAY PO
     Route: 048
     Dates: start: 20080319, end: 20080428

REACTIONS (1)
  - INTERNATIONAL NORMALISED RATIO ABNORMAL [None]
